FAERS Safety Report 10136602 (Version 1)
Quarter: 2014Q2

REPORT INFORMATION
  Report Type: Spontaneous
  Country: US (occurrence: None)
  Receive Date: 20140428
  Receipt Date: 20140428
  Transmission Date: 20141212
  Serious: No
  Sender: FDA-Public Use
  Company Number: None

PATIENT
  Age: 62 Year
  Sex: Male

DRUGS (2)
  1. OLYSIO [Suspect]
     Indication: CHRONIC HEPATITIS C
     Dosage: TAKE 1 CAPSULE DAILY?
     Dates: start: 20140318
  2. SOVALDI [Concomitant]

REACTIONS (6)
  - Swelling face [None]
  - Rash [None]
  - Visual impairment [None]
  - Swelling [None]
  - Burning sensation [None]
  - Temperature intolerance [None]
